FAERS Safety Report 19492651 (Version 1)
Quarter: 2021Q3

REPORT INFORMATION
  Report Type: Spontaneous
  Country: FR (occurrence: FR)
  Receive Date: 20210705
  Receipt Date: 20210705
  Transmission Date: 20211014
  Serious: Yes (Hospitalization)
  Sender: FDA-Public Use
  Company Number: FR-ACCORD-230551

PATIENT
  Age: 67 Year
  Sex: Female
  Weight: 66 kg

DRUGS (13)
  1. PEMBROLIZUMAB MK?3475 [Suspect]
     Active Substance: PEMBROLIZUMAB
     Indication: SQUAMOUS CELL CARCINOMA
     Dosage: 50 MG POWDER FOR SOLUTION FOR INFUSION
     Dates: start: 20210423
  2. SKENAN [Concomitant]
     Active Substance: MORPHINE SULFATE
     Dosage: 30 MG PROLONGED?RELEASE MICROGRANULES CAPSULES
  3. SKENAN [Concomitant]
     Active Substance: MORPHINE SULFATE
     Dosage: 10 MG PROLONGED?RELEASE MICROGRANULES CAPSULES
  4. RIVOTRIL [Concomitant]
     Active Substance: CLONAZEPAM
     Dosage: 2.5 MG / ML, ORAL SOLUTION IN DROP
  5. CARBOPLATIN. [Suspect]
     Active Substance: CARBOPLATIN
     Indication: SQUAMOUS CELL CARCINOMA
     Dates: start: 20210423
  6. KARDEGIC [Concomitant]
     Active Substance: ASPIRIN DL-LYSINE
     Dosage: 75 MG POWDER FOR ORAL SOLUTION IN SACHET?DOSE
  7. LEVOTHYROX [Concomitant]
     Active Substance: LEVOTHYROXINE
     Dosage: SCORED TABLET
  8. FLUOROURACIL. [Suspect]
     Active Substance: FLUOROURACIL
     Indication: SQUAMOUS CELL CARCINOMA
     Dates: start: 20210423
  9. ZOPICLONE ALTER [Concomitant]
     Active Substance: ZOPICLONE
     Dosage: SCORED FILM?COATED TABLET
  10. ACTISKENAN [Concomitant]
     Active Substance: MORPHINE SULFATE
  11. MACROGOL 4000 [Concomitant]
     Active Substance: POLYETHYLENE GLYCOL 4000
     Dosage: 4 G, POWDER FOR ORAL SOLUTION IN SACHET
  12. DOLIPRANE [Concomitant]
     Active Substance: ACETAMINOPHEN
     Dosage: 100 MG POWDER FOR ORAL SOLUTION IN SACHET?DOSE
  13. TEGRETOL [Concomitant]
     Active Substance: CARBAMAZEPINE
     Dosage: 200 MG, SCORED TABLET

REACTIONS (1)
  - Tubulointerstitial nephritis [Recovering/Resolving]

NARRATIVE: CASE EVENT DATE: 20210513
